FAERS Safety Report 5065096-5 (Version None)
Quarter: 2006Q3

REPORT INFORMATION
  Report Type: 
  Country: None (occurrence: None)
  Receive Date: 20060727
  Receipt Date: 20060727
  Transmission Date: 20061208
  Serious: Yes (Hospitalization)
  Sender: FDA-Public Use
  Company Number: None

PATIENT
  Age: 83 Year
  Sex: Female
  Weight: 101.7 kg

DRUGS (2)
  1. KETOROLAC TROMETHAMINE [Suspect]
     Indication: ARTHRITIS
     Dosage: ONCE  IV
     Route: 042
     Dates: start: 20060328, end: 20060328
  2. CELEBREX [Suspect]
     Dosage: 100 MG   BID   PO
     Route: 048
     Dates: start: 20060328, end: 20060329

REACTIONS (11)
  - CHILLS [None]
  - CONDITION AGGRAVATED [None]
  - DRUG INEFFECTIVE [None]
  - DRUG INTOLERANCE [None]
  - GOUT [None]
  - HAEMODIALYSIS [None]
  - HYPERHIDROSIS [None]
  - INCORRECT DOSE ADMINISTERED [None]
  - NAUSEA [None]
  - PYREXIA [None]
  - RENAL FAILURE ACUTE [None]
